FAERS Safety Report 24702887 (Version 1)
Quarter: 2024Q4

REPORT INFORMATION
  Report Type: Spontaneous
  Country: BE (occurrence: BE)
  Receive Date: 20241205
  Receipt Date: 20241205
  Transmission Date: 20250115
  Serious: Yes (Other)
  Sender: TEVA
  Company Number: None

PATIENT
  Age: 18 Year
  Sex: Female

DRUGS (1)
  1. RISPERIDONE [Suspect]
     Active Substance: RISPERIDONE
     Indication: Intentional self-injury
     Dosage: TIME INTERVAL: TOTAL: MORE THAN 5 TIMES THE DOSE (MORE THAN 5X THE DOSE) ONCE
     Route: 048

REACTIONS (2)
  - Extrapyramidal disorder [Not Recovered/Not Resolved]
  - Intentional overdose [Not Recovered/Not Resolved]
